FAERS Safety Report 21606241 (Version 3)
Quarter: 2023Q1

REPORT INFORMATION
  Report Type: Spontaneous
  Country: RO (occurrence: RO)
  Receive Date: 20221117
  Receipt Date: 20230104
  Transmission Date: 20230418
  Serious: Yes (Other)
  Sender: FDA-Public Use
  Company Number: RO-TAKEDA-2022TUS084734

PATIENT
  Age: 12 Year
  Sex: Male
  Weight: 45 kg

DRUGS (2)
  1. ELAPRASE [Suspect]
     Active Substance: IDURSULFASE
     Indication: Mucopolysaccharidosis II
     Dosage: 3 DOSAGE FORM, 1/WEEK
     Route: 065
     Dates: start: 20130702
  2. ELAPRASE [Suspect]
     Active Substance: IDURSULFASE
     Dosage: 4 DOSAGE FORM
     Route: 065

REACTIONS (18)
  - Bronchostenosis [Unknown]
  - Tracheomalacia [Unknown]
  - Agitation [Unknown]
  - Insomnia [Unknown]
  - Confusional state [Unknown]
  - Balance disorder [Unknown]
  - General physical health deterioration [Unknown]
  - Granuloma [Unknown]
  - Cognitive disorder [Unknown]
  - Hypokinesia [Unknown]
  - Cardiac valve disease [Unknown]
  - Musculoskeletal deformity [Unknown]
  - Kyphosis [Unknown]
  - Scoliosis [Unknown]
  - Condition aggravated [Unknown]
  - Respiration abnormal [Unknown]
  - Dyspnoea [Unknown]
  - Drug ineffective [Unknown]

NARRATIVE: CASE EVENT DATE: 20180101
